FAERS Safety Report 11193394 (Version 1)
Quarter: 2015Q2

REPORT INFORMATION
  Report Type: Report from Study
  Country: GB (occurrence: ET)
  Receive Date: 20150616
  Receipt Date: 20150616
  Transmission Date: 20150821
  Serious: Yes (Death)
  Sender: FDA-Public Use
  Company Number: GB-MYLANLABS-2015M1018871

PATIENT

DRUGS (1)
  1. PREDNISOLONE. [Suspect]
     Active Substance: PREDNISOLONE
     Indication: TYPE 2 LEPRA REACTION
     Route: 048

REACTIONS (4)
  - Abdominal pain upper [Unknown]
  - Anaemia [Unknown]
  - Hepatosplenomegaly [Unknown]
  - Multi-organ failure [Fatal]
